FAERS Safety Report 26204344 (Version 1)
Quarter: 2025Q4

REPORT INFORMATION
  Report Type: Spontaneous
  Country: KR (occurrence: KR)
  Receive Date: 20251226
  Receipt Date: 20251226
  Transmission Date: 20260117
  Serious: Yes (Other)
  Sender: FRESENIUS KABI
  Company Number: KR-FreseniusKabi-FK202517271

PATIENT
  Sex: Male

DRUGS (2)
  1. ROPIVACAINE HYDROCHLORIDE [Suspect]
     Active Substance: ROPIVACAINE HYDROCHLORIDE
     Indication: Ligament injury
     Dosage: 1 WORK
     Route: 003
     Dates: start: 20241105, end: 20241105
  2. LIDOCAINE HYDROCHLORIDE [Suspect]
     Active Substance: LIDOCAINE HYDROCHLORIDE
     Indication: Ligament injury
     Dosage: WORK
     Route: 003
     Dates: start: 20241105, end: 20241105

REACTIONS (3)
  - Rash [Recovered/Resolved]
  - Fixed eruption [Recovered/Resolved]
  - Dyspnoea [Recovered/Resolved]

NARRATIVE: CASE EVENT DATE: 20241105
